FAERS Safety Report 4382850-3 (Version None)
Quarter: 2004Q2

REPORT INFORMATION
  Report Type: 
  Country: None (occurrence: None)
  Receive Date: 20040602
  Receipt Date: 20031001
  Transmission Date: 20050107
  Serious: Yes (Hospitalization)
  Sender: FDA-Public Use
  Company Number: NSADSS2003010590

PATIENT
  Age: 52 Year
  Sex: Female
  Weight: 55.7924 kg

DRUGS (5)
  1. PROPULSID [Suspect]
     Indication: GASTROOESOPHAGEAL REFLUX DISEASE
     Dosage: ORAL, 10 MG, 2 IN 1 DAY, ORAL
     Route: 048
     Dates: start: 19990326
  2. PROPULSID [Suspect]
     Indication: GASTROOESOPHAGEAL REFLUX DISEASE
     Dosage: ORAL, 10 MG, 2 IN 1 DAY, ORAL
     Route: 048
     Dates: start: 19990716
  3. SYNTHROID [Concomitant]
  4. PRILOSEC [Concomitant]
  5. PREMARIN [Concomitant]

REACTIONS (4)
  - ABDOMINAL PAIN [None]
  - CHEST PAIN [None]
  - PALPITATIONS [None]
  - VENTRICULAR EXTRASYSTOLES [None]
